FAERS Safety Report 10648788 (Version 2)
Quarter: 2015Q1

REPORT INFORMATION
  Report Type: Spontaneous
  Country: US (occurrence: US)
  Receive Date: 20141212
  Receipt Date: 20150127
  Transmission Date: 20150720
  Serious: Yes (Hospitalization, Other)
  Sender: FDA-Public Use
  Company Number: US-PFIZER INC-2014340546

PATIENT
  Age: 80 Year
  Sex: Female

DRUGS (8)
  1. ALLOPURINOL. [Concomitant]
     Active Substance: ALLOPURINOL
     Indication: GOUTY ARTHRITIS
     Dosage: 100 MG, 2X/DAY
     Dates: start: 200212
  2. METOPROLOL TARTRATE. [Concomitant]
     Active Substance: METOPROLOL TARTRATE
     Indication: ARRHYTHMIA PROPHYLAXIS
     Dosage: 25MG (1 TABLET) TWICE DAILY
  3. CELEBREX [Suspect]
     Active Substance: CELECOXIB
     Indication: LUMBAR SPINAL STENOSIS
     Dosage: 300MG DAILY (200MG IN A.M, 100MG IN P.M)
     Dates: start: 2004
  4. WARFARIN [Concomitant]
     Active Substance: WARFARIN
     Indication: PULMONARY THROMBOSIS
     Dosage: 3MG (ONE TABLET AND A HALF) DAILY EVENING
     Dates: start: 2003
  5. CO-Q10 [Concomitant]
     Dosage: 50 MG, 1X/DAY
  6. CELEBREX [Suspect]
     Active Substance: CELECOXIB
     Indication: OSTEOARTHRITIS
  7. CELEBREX [Suspect]
     Active Substance: CELECOXIB
     Indication: SCOLIOSIS
  8. CENTRUM [Concomitant]
     Active Substance: VITAMINS
     Dosage: 1 TABLET DAILY

REACTIONS (11)
  - Rash [Unknown]
  - Arthropod bite [Not Recovered/Not Resolved]
  - Wound [Recovered/Resolved]
  - Scoliosis [Unknown]
  - Condition aggravated [Unknown]
  - Acute kidney injury [Unknown]
  - Mobility decreased [Unknown]
  - Impaired healing [Unknown]
  - Cellulitis [Not Recovered/Not Resolved]
  - Peripheral venous disease [Unknown]
  - Oedema peripheral [Recovered/Resolved]

NARRATIVE: CASE EVENT DATE: 2014
